FAERS Safety Report 22110565 (Version 1)
Quarter: 2023Q1

REPORT INFORMATION
  Report Type: Spontaneous
  Country: US (occurrence: US)
  Receive Date: 20230317
  Receipt Date: 20230317
  Transmission Date: 20230418
  Serious: No
  Sender: FDA-Public Use
  Company Number: US-ABBVIE-4342030

PATIENT
  Sex: Female
  Weight: 108.86 kg

DRUGS (5)
  1. SYNTHROID [Suspect]
     Active Substance: LEVOTHYROXINE SODIUM
     Indication: Hypothyroidism
     Route: 048
     Dates: start: 202205, end: 202210
  2. SYNTHROID [Suspect]
     Active Substance: LEVOTHYROXINE SODIUM
     Indication: Hypothyroidism
     Route: 048
     Dates: start: 202210, end: 202301
  3. SYNTHROID [Suspect]
     Active Substance: LEVOTHYROXINE SODIUM
     Indication: Hypothyroidism
     Route: 048
     Dates: start: 201710, end: 202205
  4. MAGNESIUM [Concomitant]
     Active Substance: MAGNESIUM
     Indication: Product used for unknown indication
  5. VITAMIN D [Concomitant]
     Active Substance: VITAMIN D NOS
     Indication: Product used for unknown indication

REACTIONS (11)
  - Thyroid disorder [Recovered/Resolved]
  - Illness [Unknown]
  - C-reactive protein increased [Unknown]
  - Immunoglobulins increased [Unknown]
  - Skin warm [Recovered/Resolved]
  - Red blood cell sedimentation rate increased [Unknown]
  - Erythema [Recovered/Resolved]
  - Fatigue [Recovered/Resolved]
  - Inflammatory marker increased [Unknown]
  - Myalgia [Recovered/Resolved]
  - Alopecia [Not Recovered/Not Resolved]

NARRATIVE: CASE EVENT DATE: 20210101
